FAERS Safety Report 25614370 (Version 1)
Quarter: 2025Q3

REPORT INFORMATION
  Report Type: Report from Study
  Country: US (occurrence: US)
  Receive Date: 20250728
  Receipt Date: 20250728
  Transmission Date: 20251021
  Serious: Yes (Other)
  Sender: ABBVIE
  Company Number: US-ABBVIE-6388718

PATIENT
  Sex: Male

DRUGS (1)
  1. HUMIRA [Suspect]
     Active Substance: ADALIMUMAB
     Indication: Rheumatoid arthritis
     Route: 058
     Dates: start: 2018

REACTIONS (4)
  - Sciatic nerve neuropathy [Recovered/Resolved]
  - Rheumatoid arthritis [Recovering/Resolving]
  - Musculoskeletal disorder [Not Recovered/Not Resolved]
  - Arthropathy [Not Recovered/Not Resolved]
